FAERS Safety Report 6259074-8 (Version None)
Quarter: 2009Q3

REPORT INFORMATION
  Report Type: 
  Country: None (occurrence: None)
  Receive Date: 20090707
  Receipt Date: 20090625
  Transmission Date: 20100115
  Serious: Yes (Hospitalization)
  Sender: FDA-Public Use
  Company Number: DE-ELI_LILLY_AND_COMPANY-DE200906006186

PATIENT
  Sex: Male

DRUGS (6)
  1. BYETTA [Suspect]
     Indication: TYPE 2 DIABETES MELLITUS
     Dosage: 10 UG, 2/D
     Route: 058
     Dates: start: 20090423
  2. AMARYL [Concomitant]
     Dosage: 1 MG, DAILY (1/D)
     Route: 065
  3. METFORMIN [Concomitant]
     Dosage: 1000 D/F, 2/D
     Route: 065
  4. L-THYROXIN [Concomitant]
     Dosage: 50 D/F, DAILY (1/D)
     Route: 065
  5. MICARDIS [Concomitant]
     Dosage: 80 D/F, DAILY (1/D)
     Route: 065
  6. ASPIRIN [Concomitant]
     Dosage: 100 D/F, DAILY (1/D)
     Route: 065

REACTIONS (2)
  - DEPRESSION [None]
  - REVERSIBLE ISCHAEMIC NEUROLOGICAL DEFICIT [None]
